FAERS Safety Report 15170719 (Version 14)
Quarter: 2019Q2

REPORT INFORMATION
  Report Type: Spontaneous
  Country: FI (occurrence: FI)
  Receive Date: 20180720
  Receipt Date: 20190615
  Transmission Date: 20190711
  Serious: Yes (Hospitalization, Other)
  Sender: FDA-Public Use
  Company Number: FI-BRISTOL-MYERS SQUIBB COMPANY-BMS-2018-040718

PATIENT
  Age: 78 Year
  Sex: Female

DRUGS (8)
  1. ELIQUIS [Suspect]
     Active Substance: APIXABAN
     Indication: CEREBROVASCULAR ACCIDENT PROPHYLAXIS
     Dosage: 2.5 MG, BID
     Route: 048
     Dates: start: 20171123
  2. KESTINE [Interacting]
     Active Substance: EBASTINE
     Indication: NASAL DISORDER
     Route: 065
  3. CORDARONE [Concomitant]
     Active Substance: AMIODARONE HYDROCHLORIDE
     Indication: ATRIAL FIBRILLATION
     Dosage: UNK
     Route: 048
     Dates: start: 2015
  4. KESTINE [Interacting]
     Active Substance: EBASTINE
     Indication: NASAL CONGESTION
     Dosage: 10 MG, QD
     Route: 048
     Dates: start: 2016, end: 20180421
  5. ENALAPRIL [Concomitant]
     Active Substance: ENALAPRIL
     Indication: HYPERTENSION
     Dosage: 10 MILLIGRAM, QD
     Route: 048
     Dates: start: 2016, end: 20171123
  6. KALCIPOS [Concomitant]
     Active Substance: CALCIUM CARBONATE
     Indication: PRODUCT USED FOR UNKNOWN INDICATION
     Dosage: 2 DOSAGE FORM, QD
     Route: 048
     Dates: start: 2016
  7. MAREVAN [Interacting]
     Active Substance: WARFARIN SODIUM
     Indication: PRODUCT USED FOR UNKNOWN INDICATION
     Dosage: UNK
     Route: 065
     Dates: start: 2016, end: 20171123
  8. RIVATRIL [Concomitant]
     Active Substance: CLONAZEPAM
     Indication: DYSTONIA
     Dosage: 0.5 MILLIGRAM, QD
     Route: 048
     Dates: start: 2015

REACTIONS (11)
  - Drug interaction [Recovered/Resolved]
  - Tooth deposit [Unknown]
  - Memory impairment [Unknown]
  - Gingival bleeding [Unknown]
  - Underdose [Unknown]
  - Epistaxis [Recovered/Resolved]
  - Procedural haemorrhage [Unknown]
  - Intentional product use issue [Unknown]
  - Hypoacusis [Unknown]
  - Post procedural haemorrhage [Unknown]
  - Nasal congestion [Unknown]

NARRATIVE: CASE EVENT DATE: 20171123
